FAERS Safety Report 5144130-8 (Version None)
Quarter: 2006Q4

REPORT INFORMATION
  Report Type: 
  Country: None (occurrence: None)
  Receive Date: 20061106
  Receipt Date: 20061026
  Transmission Date: 20070319
  Serious: Yes (Hospitalization)
  Sender: FDA-Public Use
  Company Number: MJ/2006/00013

PATIENT
  Age: 18 Year
  Sex: Female

DRUGS (3)
  1. CALONAL [Suspect]
     Indication: TONSILLITIS
     Dosage: 400MG AS REQUIRED
     Route: 048
     Dates: start: 20061004
  2. MEIACT [Suspect]
     Indication: TONSILLITIS
     Dosage: 300MG PER DAY
     Route: 048
     Dates: start: 20061004, end: 20061005
  3. RINGEREAZE [Suspect]
     Indication: TONSILLITIS
     Dosage: 180MG PER DAY
     Route: 048
     Dates: start: 20061004, end: 20061005

REACTIONS (8)
  - CONDITION AGGRAVATED [None]
  - ERYTHEMA [None]
  - GINGIVITIS [None]
  - HERPES VIRUS INFECTION [None]
  - OEDEMA PERIPHERAL [None]
  - PYREXIA [None]
  - RASH [None]
  - STOMATITIS [None]
